FAERS Safety Report 19654830 (Version 2)
Quarter: 2021Q3

REPORT INFORMATION
  Report Type: Spontaneous
  Country: MX (occurrence: MX)
  Receive Date: 20210804
  Receipt Date: 20210827
  Transmission Date: 20211014
  Serious: Yes (Hospitalization, Other)
  Sender: FDA-Public Use
  Company Number: MX-ALVOGEN-2021-ALVOGEN-117261

PATIENT
  Age: 56 Year
  Sex: Male

DRUGS (2)
  1. PARACETAMOL/TRAMADOL HYDROCHLORIDE [Concomitant]
     Active Substance: ACETAMINOPHEN\TRAMADOL HYDROCHLORIDE
     Indication: LUMBAR SPINAL STENOSIS
     Dosage: (1?1?1) TD 112.5 MG/975 MG
     Dates: start: 20191112, end: 20191126
  2. GABAPENTIN. [Suspect]
     Active Substance: GABAPENTIN
     Indication: LUMBAR SPINAL STENOSIS
     Dates: start: 201907, end: 201911

REACTIONS (3)
  - Hepatitis acute [Recovered/Resolved]
  - Hepatotoxicity [Recovered/Resolved]
  - Liver injury [Recovered/Resolved]

NARRATIVE: CASE EVENT DATE: 20191126
